FAERS Safety Report 21456141 (Version 1)
Quarter: 2022Q4

REPORT INFORMATION
  Report Type: Report from Study
  Country: US (occurrence: US)
  Receive Date: 20221014
  Receipt Date: 20221014
  Transmission Date: 20230113
  Serious: Yes (Other)
  Sender: FDA-Public Use
  Company Number: US-GILEAD-2022-0601271

PATIENT
  Sex: Male

DRUGS (9)
  1. AZTREONAM LYSINE [Suspect]
     Active Substance: AZTREONAM LYSINE
     Indication: Cystic fibrosis
     Dosage: 75 MG, TID, CONTINUOUS
     Route: 055
     Dates: start: 201706
  2. MAGNESIUM [Concomitant]
     Active Substance: MAGNESIUM
  3. KEPPRA [Concomitant]
     Active Substance: LEVETIRACETAM
  4. GABAPENTIN [Concomitant]
     Active Substance: GABAPENTIN
  5. GARLIC [Concomitant]
     Active Substance: GARLIC
  6. VITAMIN D NOS [Concomitant]
     Active Substance: VITAMIN D NOS
  7. XOLAIR [Concomitant]
     Active Substance: OMALIZUMAB
  8. VALIUM [Concomitant]
     Active Substance: DIAZEPAM
  9. SYMBICORT [Concomitant]
     Active Substance: BUDESONIDE\FORMOTEROL FUMARATE DIHYDRATE

REACTIONS (3)
  - Haemoptysis [Not Recovered/Not Resolved]
  - Pneumonia [Not Recovered/Not Resolved]
  - Off label use [Not Recovered/Not Resolved]
